FAERS Safety Report 14638995 (Version 1)
Quarter: 2018Q1

REPORT INFORMATION
  Report Type: Spontaneous
  Country: DK (occurrence: DK)
  Receive Date: 20180315
  Receipt Date: 20180315
  Transmission Date: 20180509
  Serious: Yes (Hospitalization)
  Sender: FDA-Public Use
  Company Number: DK-CIPLA LTD.-2018DK11179

PATIENT

DRUGS (13)
  1. FUROSEMID                          /00032601/ [Concomitant]
     Active Substance: FUROSEMIDE
     Indication: CARDIAC FAILURE CONGESTIVE
     Dosage: 30 MG, DAILY
     Route: 048
     Dates: start: 20120522
  2. ARTELAC                            /00445101/ [Concomitant]
     Active Substance: HYPROMELLOSES
     Indication: DRY EYE
     Dosage: 4 DF DAILY
     Route: 050
     Dates: start: 20160818
  3. OMEPRAZOLE. [Concomitant]
     Active Substance: OMEPRAZOLE
     Indication: GASTROOESOPHAGEAL REFLUX DISEASE
     Dosage: 20 MG, UNK
     Route: 048
     Dates: start: 20110705
  4. METOPROLOL TARTRATE. [Concomitant]
     Active Substance: METOPROLOL TARTRATE
     Dosage: 50 MG, UNK
     Route: 048
     Dates: start: 20100813
  5. FLUCONAZOLE HEXAL [Interacting]
     Active Substance: FLUCONAZOLE
     Indication: ORAL FUNGAL INFECTION
     Dosage: 50 MG, DAILY
     Route: 048
     Dates: start: 20171228, end: 20180103
  6. LOSARTAN. [Concomitant]
     Active Substance: LOSARTAN
     Indication: HYPERTENSION
     Dosage: 50 MG DAILY
     Route: 048
     Dates: start: 20110706
  7. PARACETAMOL [Concomitant]
     Active Substance: ACETAMINOPHEN
     Indication: ARTHRALGIA
     Dosage: 1000 MG, PRN
     Route: 048
     Dates: start: 20130502
  8. VIBEDEN [Concomitant]
     Indication: VITAMIN B12 DEFICIENCY
     Dosage: 1 MG/ML, UNK
     Route: 065
     Dates: start: 20140106
  9. NIZORAL [Concomitant]
     Active Substance: KETOCONAZOLE
     Indication: ANTIFUNGAL TREATMENT
     Dosage: 2 DF, WEEKLY
     Route: 003
     Dates: start: 20160204
  10. VESICARE [Concomitant]
     Active Substance: SOLIFENACIN SUCCINATE
     Indication: DYSURIA
     Dosage: 5 MG, DAILY
     Route: 048
     Dates: start: 20131028
  11. WARFARIN [Suspect]
     Active Substance: WARFARIN
     Indication: ANTICOAGULANT THERAPY
     Dosage: 2.5 MG, UNK
     Route: 048
     Dates: start: 20130125
  12. HJERTEMAGNYL                       /00002701/ [Concomitant]
     Active Substance: ASPIRIN
     Indication: THROMBOSIS PROPHYLAXIS
     Dosage: 75 MG, DAILY
     Route: 048
     Dates: start: 20130823
  13. METOPROLOL TARTRATE. [Concomitant]
     Active Substance: METOPROLOL TARTRATE
     Indication: CARDIAC FAILURE CONGESTIVE
     Dosage: 100 MG, DAILY
     Route: 048
     Dates: start: 20100813

REACTIONS (2)
  - International normalised ratio increased [Recovering/Resolving]
  - Drug interaction [Unknown]

NARRATIVE: CASE EVENT DATE: 20180107
